FAERS Safety Report 8862264 (Version 1)
Quarter: 2012Q4

REPORT INFORMATION
  Report Type: 
  Country: FR (occurrence: FR)
  Receive Date: 20121026
  Receipt Date: 20121026
  Transmission Date: 20130627
  Serious: Yes (Other)
  Sender: FDA-Public Use
  Company Number: FR-ROCHE-1149195

PATIENT

DRUGS (2)
  1. SAQUINAVIR [Suspect]
     Indication: HIV INFECTION
     Route: 064
  2. RITONAVIR [Suspect]
     Indication: HIV INFECTION
     Route: 064

REACTIONS (2)
  - Foetal macrosomia [Unknown]
  - Maternal exposure timing unspecified [Unknown]
